FAERS Safety Report 7739207-4 (Version None)
Quarter: 2011Q3

REPORT INFORMATION
  Report Type: 
  Country: None (occurrence: None)
  Receive Date: 20110909
  Receipt Date: 20110906
  Transmission Date: 20111222
  Serious: No
  Sender: FDA-Public Use
  Company Number: US-PFIZER INC-2011208382

PATIENT
  Sex: Female
  Weight: 79.4 kg

DRUGS (2)
  1. PREMARIN [Suspect]
     Indication: VULVOVAGINAL DRYNESS
     Dosage: UNK
     Route: 067
     Dates: start: 20040201, end: 20110801
  2. PREMARIN [Suspect]
     Indication: VULVOVAGINAL DISCOMFORT

REACTIONS (4)
  - VULVOVAGINAL DISCOMFORT [None]
  - VULVOVAGINAL BURNING SENSATION [None]
  - VULVOVAGINAL ERYTHEMA [None]
  - DRUG INEFFECTIVE [None]
